FAERS Safety Report 16431934 (Version 1)
Quarter: 2019Q2

REPORT INFORMATION
  Report Type: Spontaneous
  Country: US (occurrence: US)
  Receive Date: 20190507
  Receipt Date: 20190507
  Transmission Date: 20190711
  Serious: Yes (Death)
  Sender: FDA-Public Use
  Company Number: None

PATIENT
  Age: 66 Year
  Sex: Female

DRUGS (6)
  1. LORATADINE. [Concomitant]
     Active Substance: LORATADINE
  2. PENCILIIN [Concomitant]
  3. CAPECITABINE 500 MG TAB [Suspect]
     Active Substance: CAPECITABINE
     Indication: NEOPLASM MALIGNANT
     Route: 048
     Dates: start: 20190108
  4. TYKERB [Suspect]
     Active Substance: LAPATINIB DITOSYLATE
     Indication: NEOPLASM MALIGNANT
     Route: 048
     Dates: start: 20190308
  5. NORCO [Concomitant]
     Active Substance: ACETAMINOPHEN\HYDROCODONE BITARTRATE
  6. CODEINE [Concomitant]
     Active Substance: CODEINE

REACTIONS (1)
  - Death [None]
